FAERS Safety Report 9350710 (Version 2)
Quarter: 2013Q3

REPORT INFORMATION
  Report Type: Spontaneous
  Country: DE (occurrence: DE)
  Receive Date: 20130617
  Receipt Date: 20130903
  Transmission Date: 20140515
  Serious: Yes (Other)
  Sender: FDA-Public Use
  Company Number: PHHY2013DE061112

PATIENT
  Sex: Female

DRUGS (2)
  1. LEPONEX [Suspect]
     Indication: DEPRESSION
     Dosage: 25 MG, APPROXIMATELY 3 YEARS AGO
     Route: 048
  2. NOVAMINSULFON [Concomitant]
     Dosage: UNK UKN, PRN

REACTIONS (3)
  - Lung disorder [Recovering/Resolving]
  - Cough [Recovering/Resolving]
  - Infection [Recovered/Resolved]
